FAERS Safety Report 8795563 (Version 2)
Quarter: 2015Q1

REPORT INFORMATION
  Report Type: Report from Study
  Country: US (occurrence: US)
  Receive Date: 20120917
  Receipt Date: 20150321
  Transmission Date: 20150721
  Serious: Yes (Death)
  Sender: FDA-Public Use
  Company Number: US-ROCHE-1124607

PATIENT
  Sex: Female

DRUGS (11)
  1. DECADRON [Concomitant]
     Active Substance: DEXAMETHASONE
     Route: 048
  2. LORAZEPAM. [Concomitant]
     Active Substance: LORAZEPAM
     Route: 065
  3. BENADRYL [Concomitant]
     Active Substance: DIPHENHYDRAMINE HYDROCHLORIDE
     Route: 048
  4. PROVIGIL [Concomitant]
     Active Substance: MODAFINIL
     Route: 048
  5. NEXIUM [Concomitant]
     Active Substance: ESOMEPRAZOLE MAGNESIUM
     Route: 048
  6. KEPPRA [Concomitant]
     Active Substance: LEVETIRACETAM
     Route: 048
  7. LISINOPRIL. [Concomitant]
     Active Substance: LISINOPRIL
     Route: 065
  8. LAMICTAL [Concomitant]
     Active Substance: LAMOTRIGINE
     Route: 065
  9. AVASTIN [Suspect]
     Active Substance: BEVACIZUMAB
     Indication: BRAIN NEOPLASM MALIGNANT
     Route: 042
     Dates: start: 20080108
  10. DIAZEPAM. [Concomitant]
     Active Substance: DIAZEPAM
     Indication: SEIZURE
     Route: 065
  11. FORTAZ [Concomitant]
     Active Substance: CEFTAZIDIME SODIUM
     Route: 048

REACTIONS (16)
  - Disease progression [Unknown]
  - Visual acuity reduced [Unknown]
  - Swelling [Unknown]
  - Somnolence [Unknown]
  - Urinary incontinence [Unknown]
  - Off label use [Unknown]
  - Renal failure [Unknown]
  - Haemorrhage [Unknown]
  - Increased tendency to bruise [Unknown]
  - Thrombocytopenia [Unknown]
  - Death [Fatal]
  - Speech disorder [Unknown]
  - Dysphagia [Unknown]
  - Fatigue [Unknown]
  - Hypertension [Unknown]
  - Arachnoid cyst [Unknown]
